FAERS Safety Report 10256126 (Version 1)
Quarter: 2014Q2

REPORT INFORMATION
  Report Type: Spontaneous
  Country: IT (occurrence: IT)
  Receive Date: 20140624
  Receipt Date: 20140624
  Transmission Date: 20141212
  Serious: Yes (Other)
  Sender: FDA-Public Use
  Company Number: PHHY2014IT074532

PATIENT
  Age: 54 Year
  Sex: Female

DRUGS (2)
  1. METFORMIN CLORIDRATE [Suspect]
     Indication: DIABETES MELLITUS
     Dosage: 1 DF, QD
     Route: 048
     Dates: start: 20110501, end: 20140504
  2. FERRO-GRAD [Suspect]
     Dosage: 105 MG, QD
     Route: 048
     Dates: start: 20140501, end: 20140504

REACTIONS (3)
  - Hypertransaminasaemia [Recovering/Resolving]
  - Alanine aminotransferase increased [None]
  - Aspartate aminotransferase increased [None]
